FAERS Safety Report 15701367 (Version 1)
Quarter: 2018Q4

REPORT INFORMATION
  Report Type: Spontaneous
  Country: FR (occurrence: FR)
  Receive Date: 20181207
  Receipt Date: 20181207
  Transmission Date: 20190205
  Serious: Yes (Death, Congenital Anomaly)
  Sender: FDA-Public Use
  Company Number: FR-TEVA-2018-FR-983081

PATIENT
  Age: 2 Day
  Sex: Male
  Weight: 4.04 kg

DRUGS (1)
  1. COPAXONE [Suspect]
     Active Substance: GLATIRAMER ACETATE
     Indication: MULTIPLE SCLEROSIS
     Dosage: 1 DOSAGE FORMS DAILY;
     Route: 064
     Dates: start: 20170729, end: 201711

REACTIONS (2)
  - Cytogenetic abnormality [Fatal]
  - Status epilepticus [Fatal]

NARRATIVE: CASE EVENT DATE: 20180624
